FAERS Safety Report 24164872 (Version 1)
Quarter: 2024Q3

REPORT INFORMATION
  Report Type: Report from Study
  Country: US (occurrence: US)
  Receive Date: 20240801
  Receipt Date: 20240801
  Transmission Date: 20241016
  Serious: Yes (Hospitalization, Other)
  Sender: ABBVIE
  Company Number: US-ABBVIE-5364152

PATIENT
  Sex: Female

DRUGS (1)
  1. HUMIRA [Suspect]
     Active Substance: ADALIMUMAB
     Indication: Crohn^s disease
     Dosage: FORM STRENGTH UNITS: 40 MILLIGRAM?CITRATE FREE
     Route: 058
     Dates: start: 20120901

REACTIONS (11)
  - Gastroenteritis viral [Recovering/Resolving]
  - Crohn^s disease [Unknown]
  - Bacteraemia [Unknown]
  - Gait disturbance [Unknown]
  - Blood potassium decreased [Unknown]
  - Limb discomfort [Unknown]
  - Pain in extremity [Unknown]
  - Drug ineffective [Unknown]
  - Crohn^s disease [Recovered/Resolved]
  - Fatigue [Unknown]
  - Hospitalisation [Recovered/Resolved]

NARRATIVE: CASE EVENT DATE: 20150101
